FAERS Safety Report 23203658 (Version 2)
Quarter: 2023Q4

REPORT INFORMATION
  Report Type: Spontaneous
  Country: US (occurrence: US)
  Receive Date: 20231120
  Receipt Date: 20231218
  Transmission Date: 20240109
  Serious: No
  Sender: FDA-Public Use
  Company Number: US-ALK-ABELLO A/S-2023AA003943

PATIENT

DRUGS (9)
  1. AMARANTHUS RETROFLEXUS POLLEN [Suspect]
     Active Substance: AMARANTHUS RETROFLEXUS POLLEN
     Indication: Skin test
     Dosage: UNK
     Route: 058
     Dates: start: 20231016
  2. ALTERNARIA ALTERNATA [Suspect]
     Active Substance: ALTERNARIA ALTERNATA
     Indication: Skin test
     Dosage: UNK
     Route: 058
     Dates: start: 20231016
  3. CLADOSPORIUM CLADOSPORIOIDES [Suspect]
     Active Substance: CLADOSPORIUM CLADOSPORIOIDES
     Indication: Skin test
     Dosage: UNK
     Route: 058
     Dates: start: 20231016
  4. PENICILLIUM NOTATUM [Suspect]
     Active Substance: PENICILLIUM CHRYSOGENUM VAR. CHRYSOGENUM
     Indication: Skin test
     Dosage: UNK
     Route: 058
     Dates: start: 20231016
  5. ASPERGILLUS FUMIGATUS [Suspect]
     Active Substance: ASPERGILLUS FUMIGATUS
     Indication: Skin test
     Dosage: UNK
     Route: 058
     Dates: start: 20231016
  6. FELIS CATUS HAIR [Suspect]
     Active Substance: FELIS CATUS HAIR
     Indication: Skin test
     Dosage: UNK
     Route: 058
     Dates: start: 20231016
  7. CANIS LUPUS FAMILIARIS SKIN [Suspect]
     Active Substance: CANIS LUPUS FAMILIARIS SKIN
     Indication: Skin test
     Dosage: UNK
     Route: 058
     Dates: start: 20231016
  8. BLATTELLA GERMANICA\PERIPLANETA AMERICANA [Suspect]
     Active Substance: BLATTELLA GERMANICA\PERIPLANETA AMERICANA
     Indication: Skin test
     Dosage: UNK
     Route: 058
     Dates: start: 20231016
  9. ANAS PLATYRHYNCHOS FEATHER\ANSER ANSER FEATHER\GALLUS GALLUS FEATHER [Suspect]
     Active Substance: ANAS PLATYRHYNCHOS FEATHER\ANSER ANSER FEATHER\GALLUS GALLUS FEATHER
     Indication: Skin test
     Dosage: UNK
     Route: 058
     Dates: start: 20231016

REACTIONS (1)
  - Lip oedema [Recovered/Resolved]

NARRATIVE: CASE EVENT DATE: 20231016
